FAERS Safety Report 12423956 (Version 1)
Quarter: 2016Q2

REPORT INFORMATION
  Report Type: Spontaneous
  Country: US (occurrence: None)
  Receive Date: 20160531
  Receipt Date: 20160531
  Transmission Date: 20160815
  Serious: Yes (Hospitalization, Disabling, Other)
  Sender: FDA-Public Use
  Company Number: None

PATIENT
  Age: 81 Year
  Sex: Male
  Weight: 98.8 kg

DRUGS (1)
  1. OPDIVO [Suspect]
     Active Substance: NIVOLUMAB
     Indication: NON-SMALL CELL LUNG CANCER
     Dosage: UNKNOWN INTRAVENOUS (NOT OTHERWISE SPECIFIED)
     Route: 042
     Dates: start: 20160425, end: 20160509

REACTIONS (8)
  - Asthenia [None]
  - Muscular weakness [None]
  - Eyelid ptosis [None]
  - Gaze palsy [None]
  - Cardiomyopathy [None]
  - Tubulointerstitial nephritis [None]
  - Diplopia [None]
  - Acute kidney injury [None]

NARRATIVE: CASE EVENT DATE: 20160502
